FAERS Safety Report 16331866 (Version 1)
Quarter: 2019Q2

REPORT INFORMATION
  Report Type: Report from Study
  Country: US (occurrence: US)
  Receive Date: 20190520
  Receipt Date: 20190520
  Transmission Date: 20190711
  Serious: No
  Sender: FDA-Public Use
  Company Number: US-ACADIA PHARMACEUTICALS INC.-ACA-2019-012451

PATIENT
  Age: 64 Year
  Sex: Male

DRUGS (1)
  1. NUPLAZID [Suspect]
     Active Substance: PIMAVANSERIN TARTRATE
     Indication: COGNITIVE DISORDER
     Dosage: 34 MG, QD
     Route: 048
     Dates: start: 20190206, end: 201903

REACTIONS (4)
  - Mood altered [Unknown]
  - Off label use [Unknown]
  - Abnormal behaviour [Unknown]
  - Somnolence [Not Recovered/Not Resolved]

NARRATIVE: CASE EVENT DATE: 2019
